FAERS Safety Report 6816360-8 (Version None)
Quarter: 2010Q3

REPORT INFORMATION
  Report Type: 
  Country: None (occurrence: None)
  Receive Date: 20100705
  Receipt Date: 20100622
  Transmission Date: 20110219
  Serious: Yes (Other)
  Sender: FDA-Public Use
  Company Number: PHHY2010US38360

PATIENT
  Sex: Male
  Weight: 98 kg

DRUGS (13)
  1. EXJADE [Suspect]
     Indication: IRON OVERLOAD
     Dosage: 1500 MG, QD
     Route: 048
     Dates: start: 20100527
  2. EXJADE [Suspect]
     Indication: MYELODYSPLASTIC SYNDROME
  3. VITAMIN B6 [Concomitant]
  4. ASPIRIN [Concomitant]
     Dosage: 325 MG, QD
     Route: 048
  5. FOLIC ACID [Concomitant]
     Dosage: ONCE DAILY
  6. LASIX [Concomitant]
     Dosage: 20 MG, QD
     Route: 048
  7. LOPRESSOR [Concomitant]
     Dosage: 25 MG, QD
     Route: 048
  8. PERCOCET [Concomitant]
     Dosage: PRN
  9. TOPROL-XL [Concomitant]
  10. MULTI-VITAMINS [Concomitant]
  11. OXYCODONE HCL AND ACETAMINOPHEN [Concomitant]
  12. DOCUSATE [Concomitant]
  13. SENNA [Concomitant]

REACTIONS (8)
  - ANAEMIA [None]
  - CONSTIPATION [None]
  - DIZZINESS [None]
  - FALL [None]
  - FULL BLOOD COUNT DECREASED [None]
  - HAEMATOCHEZIA [None]
  - MALAISE [None]
  - RIB FRACTURE [None]
